FAERS Safety Report 8858752 (Version 2)
Quarter: 2013Q2

REPORT INFORMATION
  Report Type: Spontaneous
  Country: US (occurrence: None)
  Receive Date: 20121019
  Receipt Date: 20130604
  Transmission Date: 20140414
  Serious: Yes (Hospitalization)
  Sender: FDA-Public Use
  Company Number: USA/USA/12/0026213

PATIENT
  Age: 6 Year
  Sex: Male
  Weight: 30 kg

DRUGS (5)
  1. OLANZAPINE [Suspect]
     Indication: PRODUCT USED FOR UNKNOWN INDICATION
     Route: 048
  2. SERTRALINE (SERTRALINE) [Concomitant]
  3. TOPIRAMATE (TOPIRAMATE) [Concomitant]
  4. MELATONIN (MELATONIN) [Concomitant]
  5. GUANFACINE (GUANFACINE) [Concomitant]

REACTIONS (10)
  - Agitation [None]
  - Delirium [None]
  - Sedation [None]
  - Miosis [None]
  - Tachycardia [None]
  - Tachypnoea [None]
  - Gastrointestinal sounds abnormal [None]
  - Sinus tachycardia [None]
  - Sedation [None]
  - Hallucination, visual [None]
